FAERS Safety Report 10875003 (Version 1)
Quarter: 2015Q1

REPORT INFORMATION
  Report Type: Spontaneous
  Country: US (occurrence: US)
  Receive Date: 20150227
  Receipt Date: 20150227
  Transmission Date: 20150721
  Serious: No
  Sender: FDA-Public Use
  Company Number: US-ASTRAZENECA-2015SE09276

PATIENT
  Age: 63 Year

DRUGS (8)
  1. NEXIUM [Suspect]
     Active Substance: ESOMEPRAZOLE MAGNESIUM
     Route: 048
  2. HYDROCODONE [Suspect]
     Active Substance: HYDROCODONE
  3. LIPITOR [Suspect]
     Active Substance: ATORVASTATIN CALCIUM
  4. CYTOMEL [Suspect]
     Active Substance: LIOTHYRONINE SODIUM
  5. TRAMADOL [Suspect]
     Active Substance: TRAMADOL
  6. CELEBREX [Suspect]
     Active Substance: CELECOXIB
  7. METHOTREXATE [Suspect]
     Active Substance: METHOTREXATE
  8. SYNTHROID [Suspect]
     Active Substance: LEVOTHYROXINE SODIUM

REACTIONS (1)
  - Drug hypersensitivity [Unknown]
